FAERS Safety Report 5386797-5 (Version None)
Quarter: 2007Q3

REPORT INFORMATION
  Report Type: 
  Country: None (occurrence: None)
  Receive Date: 20070713
  Receipt Date: 20070704
  Transmission Date: 20080115
  Serious: Yes (Life-Threatening, Disabling)
  Sender: FDA-Public Use
  Company Number: GB-PFIZER INC-2006141191

PATIENT
  Age: 63 Year
  Sex: Male
  Weight: 93 kg

DRUGS (2)
  1. ATORVASTATIN [Suspect]
     Indication: BLOOD CHOLESTEROL INCREASED
     Route: 048
     Dates: start: 20050201, end: 20061001
  2. LANSOPRAZOLE [Concomitant]
     Indication: DYSPEPSIA
     Dosage: DAILY DOSE:15MG
     Route: 048

REACTIONS (1)
  - ALVEOLITIS FIBROSING [None]
